FAERS Safety Report 9633281 (Version 1)
Quarter: 2013Q4

REPORT INFORMATION
  Report Type: Report from Study
  Country: LB (occurrence: LB)
  Receive Date: 20131021
  Receipt Date: 20131021
  Transmission Date: 20140711
  Serious: Yes (Hospitalization)
  Sender: FDA-Public Use
  Company Number: LB-SA-2013SA104880

PATIENT
  Age: 50 Year
  Sex: Female

DRUGS (6)
  1. LANTUS SOLOSTAR [Suspect]
     Indication: DIABETES MELLITUS
     Route: 058
     Dates: start: 2012
  2. AMARYL [Suspect]
     Indication: DIABETES MELLITUS
     Route: 048
  3. GALVUSMET [Concomitant]
     Indication: DIABETES MELLITUS
     Route: 048
  4. MICARDIS [Concomitant]
     Route: 048
  5. ASPICOT [Concomitant]
     Route: 048
  6. SOLOSTAR [Concomitant]

REACTIONS (1)
  - Arterial stenosis [Unknown]
